FAERS Safety Report 5088228-1 (Version None)
Quarter: 2006Q3

REPORT INFORMATION
  Report Type: 
  Country: None (occurrence: None)
  Receive Date: 20060823
  Receipt Date: 20060823
  Transmission Date: 20061208
  Serious: Yes (Disabling)
  Sender: FDA-Public Use
  Company Number: None

PATIENT
  Age: 55 Year
  Sex: Male
  Weight: 68.0396 kg

DRUGS (2)
  1. PEG-INTRON, 120 MCG, THREE RIVERS PHARMACEUTICALS [Suspect]
     Indication: HEPATITIS C
     Dosage: 0.5 ML  1 ONCE WK
     Dates: start: 20050709
  2. REBETOL [Suspect]
     Indication: HEPATITIS C
     Dosage: 600MG  6 DAILY
     Dates: start: 20050709

REACTIONS (1)
  - CEREBROVASCULAR ACCIDENT [None]
